FAERS Safety Report 4393641-1 (Version None)
Quarter: 2004Q2

REPORT INFORMATION
  Report Type: 
  Country: None (occurrence: None)
  Receive Date: 20040621
  Receipt Date: 20011026
  Transmission Date: 20050107
  Serious: Yes (Hospitalization, Other)
  Sender: FDA-Public Use
  Company Number: KII-2001-0007536

PATIENT
  Sex: Female

DRUGS (2)
  1. OXYCONTIN [Suspect]
     Indication: PAIN
     Dosage: 80 MG, Q12H,
  2. PERCOCET [Suspect]
     Indication: PAIN

REACTIONS (2)
  - DRUG ABUSER [None]
  - INADEQUATE ANALGESIA [None]
